FAERS Safety Report 13803589 (Version 1)
Quarter: 2017Q3

REPORT INFORMATION
  Report Type: Report from Study
  Country: US (occurrence: US)
  Receive Date: 20170728
  Receipt Date: 20170728
  Transmission Date: 20171127
  Serious: Yes (Other)
  Sender: FDA-Public Use
  Company Number: US-PFIZER INC-2017310854

PATIENT
  Age: 61 Year
  Sex: Male

DRUGS (4)
  1. PEMBROLIZUMAB. [Suspect]
     Active Substance: PEMBROLIZUMAB
     Indication: NON-SMALL CELL LUNG CANCER METASTATIC
     Dosage: 2 MG/KG, CYCLIC (OVER 30 MIN EVERY 21 DAYS)
     Route: 042
  2. DOCETAXEL. [Suspect]
     Active Substance: DOCETAXEL
     Indication: NON-SMALL CELL LUNG CANCER METASTATIC
     Dosage: 75 MG/M2, CYCLIC (ON DAY 8, EVERY 21 DAYS)
  3. GEMCITABINE HYDROCHLORIDE. [Suspect]
     Active Substance: GEMCITABINE HYDROCHLORIDE
     Indication: NON-SMALL CELL LUNG CANCER METASTATIC
     Dosage: 900 MG/M2, CYCLIC (ON DAY 1 AND DAY 8, EVERY 21 DAYS)
  4. DEXAMETHASONE. [Concomitant]
     Active Substance: DEXAMETHASONE
     Indication: PREMEDICATION
     Dosage: 12 MG, CYCLIC (ON THE DAYS OF SYSTEMIC CHEMOTHERAPY)
     Route: 042

REACTIONS (5)
  - Tracheal haemorrhage [Unknown]
  - Neutropenia [Unknown]
  - Syncope [Unknown]
  - Thrombocytopenia [Unknown]
  - White blood cell count decreased [Unknown]
